FAERS Safety Report 12782102 (Version 2)
Quarter: 2016Q4

REPORT INFORMATION
  Report Type: Spontaneous
  Country: TH (occurrence: TH)
  Receive Date: 20160927
  Receipt Date: 20161003
  Transmission Date: 20170207
  Serious: Yes (Other)
  Sender: FDA-Public Use
  Company Number: TH-ORION CORPORATION ORION PHARMA-ENT 2016-0187

PATIENT
  Age: 65 Year
  Sex: Male

DRUGS (5)
  1. COMTAN [Suspect]
     Active Substance: ENTACAPONE
     Indication: PARKINSON^S DISEASE
     Dosage: STRENGTH: 200 MG
     Route: 065
  2. MADOPAR HBS [Suspect]
     Active Substance: BENSERAZIDE HYDROCHLORIDE\LEVODOPA
     Dosage: 50/200 MG; 7 AM, 11 AM, 4 PM, 7 PM
     Route: 065
  3. MADOPAR HBS [Suspect]
     Active Substance: BENSERAZIDE HYDROCHLORIDE\LEVODOPA
     Indication: PARKINSON^S DISEASE
     Dosage: 50/200 MG
     Route: 065
  4. COMTAN [Suspect]
     Active Substance: ENTACAPONE
     Dosage: STRENGTH: 200 MG; 7 AM, 11 AM, 4 PM AND 7 PM
     Route: 065
  5. SINEMET [Suspect]
     Active Substance: CARBIDOPA\LEVODOPA
     Indication: PARKINSON^S DISEASE
     Dosage: 25/100 MG
     Route: 065

REACTIONS (4)
  - Drug effect decreased [Unknown]
  - On and off phenomenon [Unknown]
  - Hallucination, visual [Unknown]
  - Parkinson^s disease [Unknown]
